FAERS Safety Report 26185736 (Version 1)
Quarter: 2025Q4

REPORT INFORMATION
  Report Type: Spontaneous
  Country: US (occurrence: None)
  Receive Date: 20251219
  Receipt Date: 20251219
  Transmission Date: 20260117
  Serious: Yes (Hospitalization)
  Sender: FDA-CTU
  Company Number: None

PATIENT
  Age: 40 Year
  Sex: Male

DRUGS (13)
  1. SIROLIMUS [Suspect]
     Active Substance: SIROLIMUS
     Indication: Renal transplant
     Dosage: FREQUENCY : DAILY;
     Route: 048
  2. ENVARSUS XR [Suspect]
     Active Substance: TACROLIMUS
     Indication: Renal transplant
     Dosage: FREQUENCY : DAILY;
     Route: 048
  3. VALGANCICLOVIR 450 MG TABLETS [Concomitant]
  4. FLUOXETINE HYDROCHLORIDE [Concomitant]
     Active Substance: FLUOXETINE HYDROCHLORIDE
  5. ENVARSUS 1 MG TABLETS [Concomitant]
  6. AZATHIOPRINE 100 MG TABLETS [Concomitant]
  7. PREDNISONE [Concomitant]
     Active Substance: PREDNISONE
  8. INSULIN GLARGINE SOLOSTAR PEN 100 UNIT/ML [Concomitant]
  9. ADMELOG 100 UNIT/ML SOLOSTAR [Concomitant]
  10. LOKELMA [Concomitant]
     Active Substance: SODIUM ZIRCONIUM CYCLOSILICATE
  11. ATORVASTATIN [Concomitant]
     Active Substance: ATORVASTATIN
  12. ONDANSETRON [Concomitant]
     Active Substance: ONDANSETRON
  13. AMLODIPINE BESYLATE [Concomitant]
     Active Substance: AMLODIPINE BESYLATE

REACTIONS (2)
  - Illness [None]
  - Hospitalisation [None]
